FAERS Safety Report 6652833-9 (Version None)
Quarter: 2010Q1

REPORT INFORMATION
  Report Type: 
  Country: None (occurrence: None)
  Receive Date: 20100326
  Receipt Date: 20100316
  Transmission Date: 20100710
  Serious: Yes (Hospitalization)
  Sender: FDA-Public Use
  Company Number: ES-ELI_LILLY_AND_COMPANY-ES201003004646

PATIENT
  Sex: Male
  Weight: 74.2 kg

DRUGS (12)
  1. GEMCITABINE HCL [Suspect]
     Indication: NON-SMALL CELL LUNG CANCER
     Dosage: 1250 MG/M2, D1+8 EVERY 3 WEEKS
     Route: 042
     Dates: start: 20090804, end: 20090821
  2. CISPLATIN [Suspect]
     Indication: NON-SMALL CELL LUNG CANCER
     Dosage: 75 MG/M2, EVERY 3 WEEKS
     Route: 042
     Dates: start: 20090804, end: 20090821
  3. CETUXIMAB [Suspect]
     Indication: NON-SMALL CELL LUNG CANCER
     Dosage: 250 MG/M2, WEEKLY (1/W)
     Route: 042
     Dates: start: 20090804, end: 20090821
  4. BISOPROLOL [Concomitant]
     Route: 048
  5. ACETYLSALICYLIC ACID [Concomitant]
     Route: 048
  6. OMEPRAZOLE [Concomitant]
     Dosage: 20 MG, UNK
     Route: 048
  7. METFORMIN HYDROCHLORIDE [Concomitant]
     Dosage: 850 MG, UNK
     Route: 048
  8. APREPITANT [Concomitant]
     Dosage: 125 MG, UNK
     Route: 048
     Dates: start: 20090804
  9. APREPITANT [Concomitant]
     Dosage: 80 MG, UNK
     Dates: start: 20090805, end: 20090806
  10. ONDANSETRON [Concomitant]
     Dosage: 8 MG, UNK
     Route: 042
     Dates: start: 20090804
  11. DEXAMETHASONE [Concomitant]
     Dosage: 4 MG, UNK
     Route: 048
     Dates: start: 20090805, end: 20090807
  12. METOCLOPRAMIDE [Concomitant]
     Dosage: 20 MG, UNK
     Route: 048
     Dates: start: 20090811, end: 20090812

REACTIONS (3)
  - NEUTROPENIA [None]
  - RESPIRATORY TRACT INFECTION [None]
  - THROMBOCYTOPENIA [None]
